FAERS Safety Report 24666095 (Version 2)
Quarter: 2024Q4

REPORT INFORMATION
  Report Type: Spontaneous
  Country: US (occurrence: US)
  Receive Date: 20241126
  Receipt Date: 20241225
  Transmission Date: 20250115
  Serious: No
  Sender: ABBVIE
  Company Number: US-ABBVIE-6009464

PATIENT
  Age: 82 Year
  Sex: Female
  Weight: 64 kg

DRUGS (1)
  1. KYBELLA [Suspect]
     Active Substance: DEOXYCHOLIC ACID
     Indication: Lip disorder
     Dosage: TIME INTERVAL: AS NECESSARY
     Route: 023
     Dates: start: 20241029, end: 20241029

REACTIONS (2)
  - Lip blister [Not Recovered/Not Resolved]
  - Off label use [Unknown]

NARRATIVE: CASE EVENT DATE: 20241001
